FAERS Safety Report 20976468 (Version 1)
Quarter: 2022Q2

REPORT INFORMATION
  Report Type: Spontaneous
  Country: US (occurrence: None)
  Receive Date: 20220617
  Receipt Date: 20220617
  Transmission Date: 20220721
  Serious: Yes (Death)
  Sender: FDA-Public Use
  Company Number: None

PATIENT
  Age: 76 Year
  Sex: Female
  Weight: 72.57 kg

DRUGS (18)
  1. SPRYCEL [Suspect]
     Active Substance: DASATINIB
     Indication: Philadelphia positive chronic myeloid leukaemia
     Dosage: FREQUENCY : DAILY;?
     Route: 048
     Dates: start: 202203
  2. BUSPAR [Concomitant]
     Active Substance: BUSPIRONE HYDROCHLORIDE
  3. CARVEDILOL [Concomitant]
     Active Substance: CARVEDILOL
  4. CHLORHEXIDONE [Concomitant]
  5. COLACE [Concomitant]
     Active Substance: DOCUSATE SODIUM
  6. COMBIVENT [Concomitant]
     Active Substance: ALBUTEROL SULFATE\IPRATROPIUM BROMIDE
  7. DIAZEPAM [Concomitant]
     Active Substance: DIAZEPAM
  8. DICLOFENAC [Concomitant]
     Active Substance: DICLOFENAC
  9. HYDROCODONE [Concomitant]
     Active Substance: HYDROCODONE
  10. HYDROXYZINE [Concomitant]
     Active Substance: HYDROXYZINE HYDROCHLORIDE
  11. LISINOPRIL [Concomitant]
     Active Substance: LISINOPRIL
  12. LOPERAMIDE [Concomitant]
     Active Substance: LOPERAMIDE
  13. LORAZEPAM [Concomitant]
     Active Substance: LORAZEPAM
  14. NYSTATIN POWEDER [Concomitant]
  15. PULMICORT FLEXHALER [Concomitant]
     Active Substance: BUDESONIDE
  16. SPIRIVA [Concomitant]
  17. TRIAMCINOLONE [Concomitant]
     Active Substance: TRIAMCINOLONE
  18. ZOFRAN [Concomitant]
     Active Substance: ONDANSETRON HYDROCHLORIDE

REACTIONS (1)
  - Death [None]
